FAERS Safety Report 18515733 (Version 1)
Quarter: 2020Q4

REPORT INFORMATION
  Report Type: Spontaneous
  Country: DE (occurrence: DE)
  Receive Date: 20201118
  Receipt Date: 20201118
  Transmission Date: 20210114
  Serious: Yes (Other)
  Sender: FDA-Public Use
  Company Number: DE-JNJFOC-20201117290

PATIENT
  Age: 82 Year
  Sex: Male

DRUGS (1)
  1. GALANTAMINE HBR [Suspect]
     Active Substance: GALANTAMINE HYDROBROMIDE
     Indication: DEMENTIA
     Route: 065

REACTIONS (5)
  - Dizziness [Unknown]
  - Dementia [Unknown]
  - Micturition urgency [Unknown]
  - Memory impairment [Unknown]
  - Reaction to excipient [Unknown]
